FAERS Safety Report 5783030-7 (Version None)
Quarter: 2008Q2

REPORT INFORMATION
  Report Type: 
  Country: None (occurrence: None)
  Receive Date: 20080619
  Receipt Date: 20080619
  Transmission Date: 20081010
  Serious: Yes (Hospitalization)
  Sender: FDA-Public Use
  Company Number: None

PATIENT
  Sex: Male
  Weight: 60.4 kg

DRUGS (3)
  1. CYCLOPHOSPHAMIDE [Suspect]
     Dosage: 336 MG
     Dates: start: 20080612
  2. PREDNISONE TAB [Suspect]
     Dosage: 100 MG
  3. ALLOPURINOL [Suspect]

REACTIONS (3)
  - CHEST PAIN [None]
  - HICCUPS [None]
  - INSOMNIA [None]
